FAERS Safety Report 7151756-9 (Version None)
Quarter: 2010Q4

REPORT INFORMATION
  Report Type: 
  Country: None (occurrence: None)
  Receive Date: 20101210
  Receipt Date: 20101201
  Transmission Date: 20110411
  Serious: Yes (Hospitalization, Disabling, Other)
  Sender: FDA-Public Use
  Company Number: FR-PFIZER INC-2010157460

PATIENT
  Age: 41 Year
  Sex: Male
  Weight: 97 kg

DRUGS (4)
  1. TAHOR [Suspect]
     Dosage: 40 MG, UNK
     Dates: end: 20090101
  2. KARDEGIC [Concomitant]
  3. CARDENSIEL [Concomitant]
  4. APROVEL [Concomitant]

REACTIONS (7)
  - ABDOMINAL WOUND DEHISCENCE [None]
  - DEHYDRATION [None]
  - MALNUTRITION [None]
  - PANCREATIC FISTULA [None]
  - PANCREATITIS NECROTISING [None]
  - PYELONEPHRITIS [None]
  - WEIGHT DECREASED [None]
